FAERS Safety Report 7377882-7 (Version None)
Quarter: 2011Q1

REPORT INFORMATION
  Report Type: 
  Country: None (occurrence: None)
  Receive Date: 20110328
  Receipt Date: 20110321
  Transmission Date: 20110831
  Serious: Yes (Hospitalization)
  Sender: FDA-Public Use
  Company Number: GB-ROCHE-767499

PATIENT

DRUGS (1)
  1. MEFLOQUINE HYDROCHLORIDE [Suspect]
     Dosage: DRUG: MEFLOQUINE
     Route: 065

REACTIONS (1)
  - ANAPHYLACTIC REACTION [None]
